FAERS Safety Report 12953791 (Version 1)
Quarter: 2016Q4

REPORT INFORMATION
  Report Type: Spontaneous
  Country: US (occurrence: US)
  Receive Date: 20161118
  Receipt Date: 20161118
  Transmission Date: 20170207
  Serious: No
  Sender: FDA-Public Use
  Company Number: US-009507513-1611USA003107

PATIENT
  Sex: Female

DRUGS (1)
  1. REMERON [Suspect]
     Active Substance: MIRTAZAPINE
     Dosage: 1 TABLET TAKEN IN THE EVENING
     Route: 048

REACTIONS (2)
  - Therapeutic response decreased [Unknown]
  - Poor quality sleep [Unknown]
